FAERS Safety Report 11926445 (Version 1)
Quarter: 2016Q1

REPORT INFORMATION
  Report Type: Spontaneous
  Country: TR (occurrence: TR)
  Receive Date: 20160119
  Receipt Date: 20160119
  Transmission Date: 20160526
  Serious: Yes (Hospitalization)
  Sender: FDA-Public Use
  Company Number: PHHY2016TR004156

PATIENT
  Age: 82 Year
  Sex: Female

DRUGS (1)
  1. IMATINIB [Suspect]
     Active Substance: IMATINIB
     Indication: GASTROINTESTINAL STROMAL TUMOUR
     Route: 065

REACTIONS (5)
  - Pharyngeal haemorrhage [Recovered/Resolved]
  - Kaposi^s sarcoma [Recovered/Resolved]
  - Oral disorder [Recovered/Resolved]
  - Tongue polyp [Recovered/Resolved]
  - Second primary malignancy [Recovered/Resolved]
